FAERS Safety Report 21985769 (Version 1)
Quarter: 2023Q1

REPORT INFORMATION
  Report Type: Spontaneous
  Country: US (occurrence: US)
  Receive Date: 20230213
  Receipt Date: 20230213
  Transmission Date: 20230418
  Serious: No
  Sender: FDA-Public Use
  Company Number: US-SANOFI-01483737

PATIENT
  Age: 81 Year
  Sex: Female

DRUGS (1)
  1. TOUJEO [Suspect]
     Active Substance: INSULIN GLARGINE
     Dosage: 3 U, QD

REACTIONS (3)
  - Nightmare [Unknown]
  - Neck pain [Unknown]
  - Tremor [Unknown]
